FAERS Safety Report 5991562-1 (Version None)
Quarter: 2008Q4

REPORT INFORMATION
  Report Type: 
  Country: None (occurrence: None)
  Receive Date: 20081202
  Receipt Date: 20071217
  Transmission Date: 20090506
  Serious: Yes (Other)
  Sender: FDA-Public Use
  Company Number: WAES 0612USA01266

PATIENT
  Age: 65 Year
  Sex: Female

DRUGS (3)
  1. FOSAMAX [Suspect]
     Indication: OSTEOPOROSIS
     Dosage: WKY/PO
     Route: 048
     Dates: start: 20000101, end: 20060101
  2. ESTROGENS (UNSPECIFIED) [Concomitant]
  3. THERAPY UNSPECIFIED [Concomitant]

REACTIONS (6)
  - ANXIETY [None]
  - CONTUSION [None]
  - DEPRESSION [None]
  - FALL [None]
  - JOINT SPRAIN [None]
  - OSTEONECROSIS [None]
